FAERS Safety Report 8091160-2 (Version None)
Quarter: 2012Q1

REPORT INFORMATION
  Report Type: 
  Country: None (occurrence: None)
  Receive Date: 20120129
  Receipt Date: 20110928
  Transmission Date: 20120608
  Serious: No
  Sender: FDA-Public Use
  Company Number: US-ABBOTT-11P-163-0859561-00

PATIENT
  Sex: Female

DRUGS (6)
  1. PREMPRO [Concomitant]
     Indication: PRODUCT USED FOR UNKNOWN INDICATION
  2. LORTAB [Concomitant]
     Indication: BACK PAIN
  3. ZANAFLEX [Concomitant]
     Indication: MUSCLE SPASMS
     Dosage: AT BEDTIME
  4. NEURONTIN [Concomitant]
     Indication: PAIN
     Dosage: AT BEDTIME
  5. HUMIRA [Suspect]
     Indication: CROHN'S DISEASE
     Dosage: DAY 1
     Route: 058
     Dates: start: 20110924, end: 20110924
  6. HUMIRA [Suspect]

REACTIONS (1)
  - INJECTION SITE PAIN [None]
